FAERS Safety Report 4875304-9 (Version None)
Quarter: 2006Q1

REPORT INFORMATION
  Report Type: 
  Country: None (occurrence: None)
  Receive Date: 20060109
  Receipt Date: 20050824
  Transmission Date: 20060701
  Serious: Yes (Hospitalization)
  Sender: FDA-Public Use
  Company Number: US-MERCK-0508USA04345

PATIENT
  Age: 65 Year
  Sex: Male
  Weight: 86 kg

DRUGS (1)
  1. VIOXX [Suspect]
     Indication: ARTHRITIS
     Route: 048
     Dates: start: 19991101, end: 20040930

REACTIONS (5)
  - ANXIETY [None]
  - CARDIAC DISORDER [None]
  - INSOMNIA [None]
  - MYOCARDIAL INFARCTION [None]
  - NERVOUSNESS [None]
